FAERS Safety Report 6636503-9 (Version None)
Quarter: 2010Q1

REPORT INFORMATION
  Report Type: 
  Country: None (occurrence: None)
  Receive Date: 20100311
  Receipt Date: 20100226
  Transmission Date: 20100710
  Serious: No
  Sender: FDA-Public Use
  Company Number: 2010020110

PATIENT
  Age: 31 Year
  Sex: Male

DRUGS (3)
  1. ONSOLIS [Suspect]
  2. ACTIQ (FENTANYL) [Concomitant]
  3. FENTANYL [Concomitant]

REACTIONS (1)
  - INTERCEPTED DRUG DISPENSING ERROR [None]
